FAERS Safety Report 6920229-8 (Version None)
Quarter: 2010Q3

REPORT INFORMATION
  Report Type: 
  Country: None (occurrence: None)
  Receive Date: 20100809
  Receipt Date: 20100728
  Transmission Date: 20110219
  Serious: Yes (Hospitalization)
  Sender: FDA-Public Use
  Company Number: 201004025

PATIENT
  Age: 46 Year
  Sex: Male
  Weight: 79.3795 kg

DRUGS (13)
  1. TESTIM [Suspect]
     Indication: BLOOD TESTOSTERONE DECREASED
     Dosage: 50 MG, 1 IN 1 D, TRANSDERMAL, 50 MG, 1 IN 1 D, TRANSDERMAL
     Route: 062
     Dates: start: 20070101, end: 20091101
  2. TESTIM [Suspect]
     Indication: BLOOD TESTOSTERONE DECREASED
     Dosage: 50 MG, 1 IN 1 D, TRANSDERMAL, 50 MG, 1 IN 1 D, TRANSDERMAL
     Route: 062
     Dates: start: 20100416, end: 20100426
  3. TESTIM [Suspect]
     Indication: BLOOD TESTOSTERONE DECREASED
     Dosage: 50 MG, 1 IN 1 D, TRANSDERMAL, 50 MG, 1 IN 1 D, TRANSDERMAL
     Route: 062
     Dates: start: 20091201
  4. SEROQUEL [Concomitant]
  5. CELEXA [Concomitant]
  6. CYMBALTA [Concomitant]
  7. XANAX [Concomitant]
  8. REMERON [Concomitant]
  9. KLONOPIN [Concomitant]
  10. LEXAPRO [Concomitant]
  11. ABILIFY (ARIPIRAZOLE) [Concomitant]
  12. ATIVAN [Concomitant]
  13. DEPAKOTE [Concomitant]

REACTIONS (4)
  - DEPRESSION [None]
  - HEADACHE [None]
  - SLEEP APNOEA SYNDROME [None]
  - SUICIDAL IDEATION [None]
